FAERS Safety Report 9102395 (Version 1)
Quarter: 2013Q1

REPORT INFORMATION
  Report Type: Spontaneous
  Country: US (occurrence: US)
  Receive Date: 20130218
  Receipt Date: 20130218
  Transmission Date: 20140127
  Serious: Yes (Death)
  Sender: FDA-Public Use
  Company Number: US-COVIDIEN/TYCO HEALTHCARE/MALLINCKRODT-T201300678

PATIENT
  Age: 64 Year
  Sex: Female

DRUGS (21)
  1. HYDROCODONE/ACETAMINOPHEN [Suspect]
     Dosage: UNK
     Route: 048
  2. PENNSAID [Suspect]
     Route: 048
  3. DESIPRAMINE [Suspect]
     Route: 048
  4. DILTIAZEM ER [Suspect]
     Route: 048
  5. VENLAFAXINE [Suspect]
     Route: 048
  6. LAMOTRIGINE [Suspect]
     Route: 048
  7. HYDROCHLOROTHIAZIDE [Suspect]
     Route: 048
  8. ARMODAFINIL [Suspect]
     Route: 048
  9. POTASSIUM CHLORIDE [Suspect]
     Route: 048
  10. TRIFLUOPERAZINE [Suspect]
     Route: 048
  11. ESCITALOPRAM [Suspect]
     Route: 048
  12. THYROID PREPARATIONS [Suspect]
     Route: 048
  13. PANTOPRAZOLE [Suspect]
     Route: 048
  14. LANSOPRAZOLE [Suspect]
     Route: 048
  15. ROSUVASTATIN [Suspect]
     Route: 048
  16. NAPROXEN [Suspect]
     Route: 048
  17. NITROFURANTOIN [Suspect]
     Route: 048
  18. ACETAMINOPHEN W/PROPOXYPHENE [Suspect]
     Route: 048
  19. SOLIFENACIN [Suspect]
     Route: 048
  20. CIPROFLOXACIN [Suspect]
     Route: 048
  21. PROGESTIN [Suspect]

REACTIONS (1)
  - Completed suicide [Fatal]
